FAERS Safety Report 10052314 (Version 1)
Quarter: 2014Q2

REPORT INFORMATION
  Report Type: Spontaneous
  Country: US (occurrence: None)
  Receive Date: 20140401
  Receipt Date: 20140401
  Transmission Date: 20141212
  Serious: Yes (Disabling)
  Sender: FDA-Public Use
  Company Number: None

PATIENT
  Age: 42 Year
  Sex: Male

DRUGS (2)
  1. FORTESTA [Suspect]
     Indication: BLOOD TESTOSTERONE DECREASED
     Dosage: 4 PUMPS, APPLIED TO A SURFACE, USUALLY THE SKIN
     Dates: start: 2012
  2. FORTESTA [Suspect]
     Indication: HYPOGONADISM
     Dosage: 4 PUMPS, APPLIED TO A SURFACE, USUALLY THE SKIN
     Dates: start: 2012

REACTIONS (1)
  - Optic ischaemic neuropathy [None]
